FAERS Safety Report 5186380-0 (Version None)
Quarter: 2006Q4

REPORT INFORMATION
  Report Type: 
  Country: None (occurrence: None)
  Receive Date: 20061220
  Receipt Date: 20061027
  Transmission Date: 20070319
  Serious: Yes (Death, Life-Threatening, Other)
  Sender: FDA-Public Use
  Company Number: FR-ELI_LILLY_AND_COMPANY-FR200610005019

PATIENT
  Age: 59 Year
  Sex: Male
  Weight: 70 kg

DRUGS (8)
  1. KYTRIL [Concomitant]
     Indication: PREMEDICATION
     Dosage: UNK, UNKNOWN
     Route: 065
  2. MEDROL [Concomitant]
     Indication: PREMEDICATION
     Dosage: 100 MG, UNKNOWN
     Route: 065
  3. ESOMEPRAZOLE MAGNESIUM [Concomitant]
  4. JOSIR [Concomitant]
  5. PROSCAR [Concomitant]
  6. LOVENOX [Concomitant]
  7. SOLUPRED [Concomitant]
     Dosage: 60 MG, UNKNOWN
     Route: 065
  8. GEMZAR [Suspect]
     Indication: PLEURAL MESOTHELIOMA
     Dosage: 1800 MG, UNKNOWN
     Route: 042

REACTIONS (3)
  - CARDIAC FAILURE CONGESTIVE [None]
  - MALIGNANT NEOPLASM PROGRESSION [None]
  - SUPRAVENTRICULAR TACHYARRHYTHMIA [None]
